FAERS Safety Report 15653121 (Version 2)
Quarter: 2018Q4

REPORT INFORMATION
  Report Type: Spontaneous
  Country: US (occurrence: US)
  Receive Date: 20181123
  Receipt Date: 20181217
  Transmission Date: 20190205
  Serious: No
  Sender: FDA-Public Use
  Company Number: US-NOVOPROD-616419

PATIENT
  Age: 62 Year
  Sex: Female

DRUGS (2)
  1. NOVOLOG [Suspect]
     Active Substance: INSULIN ASPART
     Indication: PRODUCT USED FOR UNKNOWN INDICATION
     Dosage: UNK
     Route: 058
  2. LEVEMIR [Suspect]
     Active Substance: INSULIN DETEMIR
     Indication: PRODUCT USED FOR UNKNOWN INDICATION
     Dosage: UNK
     Route: 058

REACTIONS (7)
  - Drug ineffective [Unknown]
  - Feeling jittery [Unknown]
  - Gastrooesophageal reflux disease [Unknown]
  - Eye irritation [Unknown]
  - Blood glucose increased [Unknown]
  - Throat irritation [Unknown]
  - Pancreatic disorder [Unknown]
